FAERS Safety Report 21119380 (Version 1)
Quarter: 2022Q3

REPORT INFORMATION
  Report Type: Spontaneous
  Country: US (occurrence: None)
  Receive Date: 20220721
  Receipt Date: 20220721
  Transmission Date: 20221027
  Serious: No
  Sender: FDA-Public Use
  Company Number: None

PATIENT
  Age: 35 Year
  Sex: Female
  Weight: 56.25 kg

DRUGS (10)
  1. CLONAZEPAM [Suspect]
     Active Substance: CLONAZEPAM
     Indication: Anxiety
     Dates: start: 20190805, end: 20220328
  2. CLONAZEPAM [Suspect]
     Active Substance: CLONAZEPAM
     Indication: Panic disorder
  3. SERTRALINE [Concomitant]
  4. PROGESTERONE [Concomitant]
     Active Substance: PROGESTERONE
  5. VITAMIN C [Concomitant]
     Active Substance: ASCORBIC ACID
  6. FISH OIL [Concomitant]
  7. PRENATAL VITAMIN [Concomitant]
  8. VITAMIN D [Concomitant]
     Active Substance: VITAMIN D NOS
  9. MAGNESIUM [Concomitant]
  10. PRASTERONE [Concomitant]
     Active Substance: PRASTERONE

REACTIONS (8)
  - Tinnitus [None]
  - Anxiety [None]
  - Restless legs syndrome [None]
  - Insomnia [None]
  - Withdrawal syndrome [None]
  - Burning sensation [None]
  - Paraesthesia [None]
  - Dysgeusia [None]

NARRATIVE: CASE EVENT DATE: 20211206
